FAERS Safety Report 25554262 (Version 1)
Quarter: 2025Q3

REPORT INFORMATION
  Report Type: Spontaneous
  Country: CN (occurrence: CN)
  Receive Date: 20250715
  Receipt Date: 20250715
  Transmission Date: 20251021
  Serious: Yes (Hospitalization)
  Sender: PFIZER
  Company Number: CN-PFIZER INC-PV202500082371

PATIENT
  Age: 65 Year
  Sex: Male
  Weight: 51 kg

DRUGS (6)
  1. TIGECYCLINE [Suspect]
     Active Substance: TIGECYCLINE
     Indication: Anti-infective therapy
     Dosage: 100 MG, 1X/DAY
     Route: 041
     Dates: start: 20250626
  2. COLISTIMETHATE SODIUM [Suspect]
     Active Substance: COLISTIMETHATE SODIUM
     Indication: Anti-infective therapy
     Dosage: 150 MG, 2X/DAY
     Route: 041
     Dates: start: 20250626
  3. CASPOFUNGIN ACETATE [Suspect]
     Active Substance: CASPOFUNGIN ACETATE
     Indication: Anti-infective therapy
     Dosage: 70 MG, 1X/DAY
     Route: 041
     Dates: start: 20250626
  4. SODIUM CHLORIDE [Concomitant]
     Active Substance: SODIUM CHLORIDE
     Indication: Vehicle solution use
     Dosage: 100 ML, 1X/DAY
     Route: 041
     Dates: start: 20250626, end: 20250709
  5. SODIUM CHLORIDE [Concomitant]
     Active Substance: SODIUM CHLORIDE
     Dosage: 100 ML, 1X/DAY
     Route: 041
     Dates: start: 20250626, end: 20250709
  6. SODIUM CHLORIDE [Concomitant]
     Active Substance: SODIUM CHLORIDE
     Dosage: 250 ML, 2X/DAY
     Route: 041
     Dates: start: 20250626, end: 20250709

REACTIONS (3)
  - Blood bilirubin increased [Unknown]
  - Bile acids increased [Unknown]
  - Off label use [Unknown]

NARRATIVE: CASE EVENT DATE: 20250626
